FAERS Safety Report 16882698 (Version 2)
Quarter: 2019Q4

REPORT INFORMATION
  Report Type: Report from Study
  Country: None (occurrence: US)
  Receive Date: 20191003
  Receipt Date: 20191007
  Transmission Date: 20200122
  Serious: Yes (Hospitalization)
  Sender: FDA-Public Use
  Company Number: US-ABBVIE-19K-163-2947209-00

PATIENT
  Sex: Male

DRUGS (2)
  1. VENCLEXTA [Suspect]
     Active Substance: VENETOCLAX
     Indication: ACUTE MYELOID LEUKAEMIA RECURRENT
     Dosage: TAKE 100 MG BY MOUTH ON DAY 2, TAKE 2 TABLETS EVERY DAY
     Route: 048
  2. VENCLEXTA [Suspect]
     Active Substance: VENETOCLAX
     Dosage: 200 MG BY MOUTH TAKE 2 TABLETS EVERY DAY TWICE
     Route: 048

REACTIONS (2)
  - Hospice care [Unknown]
  - Off label use [Unknown]
